FAERS Safety Report 14337955 (Version 3)
Quarter: 2018Q1

REPORT INFORMATION
  Report Type: Spontaneous
  Country: FR (occurrence: FR)
  Receive Date: 20171229
  Receipt Date: 20180328
  Transmission Date: 20180509
  Serious: Yes (Other)
  Sender: FDA-Public Use
  Company Number: FR-ASTRAZENECA-2017SE27830

PATIENT
  Age: 49 Year
  Sex: Female

DRUGS (2)
  1. FASLODEX [Suspect]
     Active Substance: FULVESTRANT
     Indication: BREAST CANCER FEMALE
     Route: 030
     Dates: start: 201608
  2. ENANTONE LP [Concomitant]
     Active Substance: LEUPROLIDE ACETATE

REACTIONS (14)
  - Sensory loss [Recovered/Resolved]
  - Injection site haemorrhage [Not Recovered/Not Resolved]
  - Product use issue [Not Recovered/Not Resolved]
  - Off label use [Not Recovered/Not Resolved]
  - Oestradiol increased [Recovered/Resolved]
  - Injection site pruritus [Recovered/Resolved]
  - Malaise [Recovered/Resolved]
  - Injection site rash [Recovered/Resolved]
  - Injection site haematoma [Not Recovered/Not Resolved]
  - Presyncope [Recovered/Resolved]
  - Injection site pain [Unknown]
  - Injection site nodule [Recovered/Resolved]
  - Injection site swelling [Recovered/Resolved]
  - Underdose [Unknown]

NARRATIVE: CASE EVENT DATE: 2017
